FAERS Safety Report 17133355 (Version 1)
Quarter: 2019Q4

REPORT INFORMATION
  Report Type: Spontaneous
  Country: US (occurrence: US)
  Receive Date: 20191210
  Receipt Date: 20191210
  Transmission Date: 20200122
  Serious: No
  Sender: FDA-Public Use
  Company Number: US-009507513-1911USA007475

PATIENT
  Age: 35 Year
  Sex: Female

DRUGS (3)
  1. GANIRELIX ACETATE INJECTION [Suspect]
     Active Substance: GANIRELIX ACETATE
     Indication: INFERTILITY FEMALE
     Dosage: 250 MICROGRAM, AS DIRECTED
     Route: 058
     Dates: start: 20191101
  2. MENOPUR [Concomitant]
     Active Substance: FOLLITROPIN\LUTEINIZING HORMONE
  3. NOVAREL [Concomitant]
     Active Substance: CHORIOGONADOTROPIN ALFA

REACTIONS (1)
  - Rash [Unknown]

NARRATIVE: CASE EVENT DATE: 20191101
